FAERS Safety Report 17594351 (Version 1)
Quarter: 2020Q1

REPORT INFORMATION
  Report Type: Spontaneous
  Country: US (occurrence: US)
  Receive Date: 20200327
  Receipt Date: 20200327
  Transmission Date: 20200409
  Serious: Yes (Death)
  Sender: FDA-Public Use
  Company Number: US-BAUSCH-BL-2020-009022

PATIENT
  Age: 68 Year
  Sex: Female

DRUGS (2)
  1. VASOTEC [Suspect]
     Active Substance: ENALAPRIL MALEATE
     Indication: PRODUCT USE IN UNAPPROVED INDICATION
  2. VASOTEC [Suspect]
     Active Substance: ENALAPRIL MALEATE
     Indication: HYPERTONIC BLADDER
     Route: 065

REACTIONS (3)
  - Dry mouth [Unknown]
  - Death [Fatal]
  - Product use in unapproved indication [Unknown]

NARRATIVE: CASE EVENT DATE: 2007
